FAERS Safety Report 24585889 (Version 2)
Quarter: 2024Q4

REPORT INFORMATION
  Report Type: Report from Study
  Country: US (occurrence: US)
  Receive Date: 20241106
  Receipt Date: 20241113
  Transmission Date: 20250114
  Serious: Yes (Hospitalization)
  Sender: EISAI
  Company Number: US-Eisai-EC-2024-178108

PATIENT
  Age: 67 Year
  Sex: Female

DRUGS (13)
  1. LENVIMA [Suspect]
     Active Substance: LENVATINIB
     Indication: Salivary gland cancer
     Route: 048
     Dates: start: 20240810, end: 20240914
  2. LENVIMA [Suspect]
     Active Substance: LENVATINIB
     Route: 048
     Dates: start: 2024, end: 2024
  3. LENVIMA [Suspect]
     Active Substance: LENVATINIB
     Route: 048
     Dates: start: 2024
  4. EXCEDRIN [Concomitant]
     Active Substance: ACETAMINOPHEN\ASPIRIN\CAFFEINE
     Dosage: DOSE AND FREQUENCY UNKNOWN
  5. OMEPRAZOLE [Concomitant]
     Active Substance: OMEPRAZOLE
     Dosage: DOSE AND FREQUENCY UNKNOWN
  6. SUMATRIPTAN [Concomitant]
     Active Substance: SUMATRIPTAN
     Dosage: DOSE AND FREQUENCY UNKNOWN
  7. LEVOTHYROXINE [Concomitant]
     Active Substance: LEVOTHYROXINE
     Dosage: DOSE AND FREQUENCY UNKNOWN
  8. VITAMIN D3 [Concomitant]
     Active Substance: CHOLECALCIFEROL
     Dosage: DOSE AND FREQUENCY UNKNOWN
  9. CARVEDILOL [Concomitant]
     Active Substance: CARVEDILOL
     Dosage: DOSE AND FREQUENCY UNKNOWN
  10. REPATHA [Concomitant]
     Active Substance: EVOLOCUMAB
     Dosage: DOSE AND FREQUENCY UNKNOWN
  11. HYDROCODONE [Concomitant]
     Active Substance: HYDROCODONE
     Dosage: DOSE AND FREQUENCY UNKNOWN
  12. PROCHLORPERA [Concomitant]
     Dosage: DOSE AND FREQUENCY UNKNOWN
  13. VITAMIN B12 [Concomitant]
     Active Substance: CYANOCOBALAMIN
     Dosage: DOSE AND FREQUENCY UNKNOWN

REACTIONS (2)
  - Vomiting [Not Recovered/Not Resolved]
  - Pneumonia aspiration [Not Recovered/Not Resolved]

NARRATIVE: CASE EVENT DATE: 20241015
